FAERS Safety Report 6886447-2 (Version None)
Quarter: 2010Q3

REPORT INFORMATION
  Report Type: 
  Country: None (occurrence: None)
  Receive Date: 20100729
  Receipt Date: 20090730
  Transmission Date: 20110219
  Serious: Yes (Other)
  Sender: FDA-Public Use
  Company Number: US-PFIZER INC-2007061698

PATIENT
  Sex: Female
  Weight: 60 kg

DRUGS (3)
  1. CELEBREX [Suspect]
     Indication: OSTEOARTHRITIS
  2. PREVACID [Concomitant]
  3. MULTI-VITAMINS [Concomitant]

REACTIONS (1)
  - GASTRITIS EROSIVE [None]
